FAERS Safety Report 6258687-7 (Version None)
Quarter: 2009Q3

REPORT INFORMATION
  Report Type: 
  Country: None (occurrence: None)
  Receive Date: 20090707
  Receipt Date: 20090629
  Transmission Date: 20100115
  Serious: Yes (Hospitalization, Other)
  Sender: FDA-Public Use
  Company Number: US-ABBOTT-09P-163-0577183-00

PATIENT
  Sex: Female
  Weight: 76.272 kg

DRUGS (5)
  1. HUMIRA [Suspect]
     Indication: PSORIATIC ARTHROPATHY
     Dates: start: 20070101, end: 20081101
  2. HUMIRA [Suspect]
     Dates: start: 20090501
  3. VENLAXINE [Concomitant]
     Indication: PSORIASIS
  4. LEVOTHROID [Concomitant]
     Indication: HYPOTHYROIDISM
  5. VITAMINS [Concomitant]
     Indication: VITAMIN SUPPLEMENTATION

REACTIONS (6)
  - ARTHRALGIA [None]
  - ATRIAL FIBRILLATION [None]
  - CHOLELITHIASIS [None]
  - MALAISE [None]
  - NAIL DISORDER [None]
  - PSORIASIS [None]
